FAERS Safety Report 11580156 (Version 1)
Quarter: 2015Q3

REPORT INFORMATION
  Report Type: Spontaneous
  Country: US (occurrence: US)
  Receive Date: 20150916
  Receipt Date: 20150916
  Transmission Date: 20151125
  Serious: No
  Sender: FDA-Public Use
  Company Number: US-ELI_LILLY_AND_COMPANY-US200805000013

PATIENT
  Age: 84 Year
  Sex: Female
  Weight: 56.69 kg

DRUGS (10)
  1. HYDROCODONE [Concomitant]
     Active Substance: HYDROCODONE
  2. METHOTREXATE [Concomitant]
     Active Substance: METHOTREXATE
     Indication: RHEUMATOID ARTHRITIS
  3. PROCET                                  /BGD/ [Concomitant]
     Dosage: 1 D/F, EVERY 4 HRS
  4. HUMIRA [Concomitant]
     Active Substance: ADALIMUMAB
     Indication: RHEUMATOID ARTHRITIS
     Dosage: UNK, UNK
     Dates: start: 200405, end: 20070713
  5. FORTEO [Suspect]
     Active Substance: TERIPARATIDE
     Indication: OSTEOPOROSIS
  6. OLMESARTAN MEDOXOMIL. [Concomitant]
     Active Substance: OLMESARTAN MEDOXOMIL
     Indication: BLOOD PRESSURE INCREASED
     Dates: start: 2002, end: 20070711
  7. LEVOTHYROXINE. [Concomitant]
     Active Substance: LEVOTHYROXINE
     Indication: HYPOTHYROIDISM
  8. DEXAMETHASONE. [Concomitant]
     Active Substance: DEXAMETHASONE
     Dates: start: 20070713, end: 20070713
  9. DARVOCET [Concomitant]
     Active Substance: ACETAMINOPHEN\PROPOXYPHENE HYDROCHLORIDE
     Dosage: 1.5 D/F, AS NEEDED
  10. AMLODIPINE [Concomitant]
     Active Substance: AMLODIPINE BESYLATE
     Indication: BLOOD PRESSURE INCREASED
     Dosage: 5 MG, DAILY (1/D)
     Dates: start: 20070711

REACTIONS (11)
  - Pain [Unknown]
  - Petechiae [Unknown]
  - Haemorrhage [Unknown]
  - Asthenia [Unknown]
  - Haemoglobin decreased [Unknown]
  - Hiatus hernia [Unknown]
  - Nausea [Recovering/Resolving]
  - Platelet count decreased [Unknown]
  - Haematocrit decreased [Unknown]
  - Flatulence [Unknown]
  - Burning sensation [Unknown]

NARRATIVE: CASE EVENT DATE: 20070524
